FAERS Safety Report 5088932-5 (Version None)
Quarter: 2006Q3

REPORT INFORMATION
  Report Type: 
  Country: None (occurrence: None)
  Receive Date: 20060825
  Receipt Date: 20060814
  Transmission Date: 20061208
  Serious: Yes (Hospitalization)
  Sender: FDA-Public Use
  Company Number: FR-JNJFOC-20060802953

PATIENT
  Age: 95 Year
  Sex: Female
  Weight: 71 kg

DRUGS (8)
  1. DURAGESIC-100 [Suspect]
     Route: 062
  2. DURAGESIC-100 [Suspect]
     Indication: DRUG USE FOR UNKNOWN INDICATION
     Route: 062
  3. MOTILIUM [Concomitant]
     Route: 065
  4. AMOXICILLIN [Concomitant]
     Route: 065
  5. ASPIRIN [Concomitant]
     Route: 065
  6. VIRLIX [Concomitant]
     Route: 065
  7. ALDALIX [Concomitant]
     Route: 065
  8. ALDACTONE [Concomitant]
     Route: 065

REACTIONS (5)
  - APHASIA [None]
  - CONFUSIONAL STATE [None]
  - DISORIENTATION [None]
  - HEMIPARESIS [None]
  - SOMNOLENCE [None]
